FAERS Safety Report 11334417 (Version 1)
Quarter: 2015Q3

REPORT INFORMATION
  Report Type: Other
  Country: IL (occurrence: IL)
  Receive Date: 20150804
  Receipt Date: 20150804
  Transmission Date: 20151125
  Serious: Yes (Hospitalization)
  Sender: FDA-Public Use
  Company Number: IL-DEXPHARM-20151011

PATIENT
  Age: 57 Year
  Sex: Male

DRUGS (7)
  1. METHOTREXATE [Interacting]
     Active Substance: METHOTREXATE
     Indication: SUSAC^S SYNDROME
  2. ASPIRIN. [Interacting]
     Active Substance: ASPIRIN
  3. ENALADEX [Interacting]
     Active Substance: ENALAPRIL MALEATE
  4. PREDNISONE. [Suspect]
     Active Substance: PREDNISONE
  5. OMEPRAZOLE. [Interacting]
     Active Substance: OMEPRAZOLE
  6. FAMOTIDINE. [Concomitant]
     Active Substance: FAMOTIDINE
  7. HALOPERIDOL. [Concomitant]
     Active Substance: HALOPERIDOL

REACTIONS (3)
  - Hepatotoxicity [Recovered/Resolved]
  - Drug interaction [Recovered/Resolved]
  - Pancytopenia [Recovered/Resolved]
